FAERS Safety Report 14140401 (Version 1)
Quarter: 2017Q4

REPORT INFORMATION
  Report Type: Spontaneous
  Country: US (occurrence: US)
  Receive Date: 20171030
  Receipt Date: 20171030
  Transmission Date: 20180321
  Serious: No
  Sender: FDA-Public Use
  Company Number: US-009507513-1710USA014079

PATIENT
  Age: 64 Year
  Sex: Male

DRUGS (3)
  1. LOVASTATIN. [Suspect]
     Active Substance: LOVASTATIN
     Dosage: UNKNOWN
  2. CRESTOR [Suspect]
     Active Substance: ROSUVASTATIN CALCIUM
     Dosage: UNKNOWN
  3. ZOCOR [Suspect]
     Active Substance: SIMVASTATIN
     Dosage: UNKNOWN

REACTIONS (1)
  - Pain in extremity [Unknown]
